FAERS Safety Report 5822183-9 (Version None)
Quarter: 2008Q3

REPORT INFORMATION
  Report Type: 
  Country: None (occurrence: None)
  Receive Date: 20080721
  Receipt Date: 20080708
  Transmission Date: 20090109
  Serious: Yes (Hospitalization)
  Sender: FDA-Public Use
  Company Number: A-CH2008-21175

PATIENT
  Age: 57 Year
  Sex: Male

DRUGS (1)
  1. TRACLEER [Suspect]
     Indication: PORTOPULMONARY HYPERTENSION
     Dosage: ORAL
     Route: 048

REACTIONS (3)
  - FLUID RETENTION [None]
  - PNEUMONIA [None]
  - PULMONARY OEDEMA [None]
